FAERS Safety Report 4575681-2 (Version None)
Quarter: 2005Q1

REPORT INFORMATION
  Report Type: 
  Country: None (occurrence: None)
  Receive Date: 20050127
  Receipt Date: 20041021
  Transmission Date: 20050727
  Serious: No
  Sender: FDA-Public Use
  Company Number: USA041081828

PATIENT
  Age: 5 Year
  Sex: Male
  Weight: 19 kg

DRUGS (1)
  1. STRATTERA [Suspect]
     Indication: ATTENTION DEFICIT/HYPERACTIVITY DISORDER
     Dosage: 40 MG DAY
     Dates: start: 20040601

REACTIONS (12)
  - ABDOMINAL DISTENSION [None]
  - ABDOMINAL PAIN UPPER [None]
  - AGGRESSION [None]
  - DRUG INEFFECTIVE [None]
  - ECZEMA [None]
  - FEELING ABNORMAL [None]
  - HUNGER [None]
  - MYDRIASIS [None]
  - PRURITUS [None]
  - RASH PAPULAR [None]
  - TREMOR [None]
  - WEIGHT DECREASED [None]
